FAERS Safety Report 8389643 (Version 5)
Quarter: 2013Q4

REPORT INFORMATION
  Report Type: Spontaneous
  Country: FR (occurrence: FR)
  Receive Date: 20120203
  Receipt Date: 20131031
  Transmission Date: 20140711
  Serious: Yes (Disabling)
  Sender: FDA-Public Use
  Company Number: FR-009507513-1202FRA00006

PATIENT
  Age: 71 Year
  Sex: Female

DRUGS (6)
  1. NOROXINE [Suspect]
     Indication: CYSTITIS
     Dosage: 400 MG, BID
     Route: 048
     Dates: start: 201108, end: 201108
  2. LEVOTHYROX [Concomitant]
     Indication: THYROID DISORDER
     Dosage: 62.5 U, QD
     Route: 048
  3. CRESTOR [Concomitant]
     Indication: DYSLIPIDAEMIA
     Dosage: 1.5 UNK, QW
     Route: 048
     Dates: start: 2008, end: 201109
  4. COAPROVEL [Concomitant]
     Indication: HYPERTENSION
     Route: 048
  5. SELECTOL [Concomitant]
     Indication: HYPERTENSION
     Dosage: 0.5 MG, QD
     Route: 048
  6. IPERTEN [Concomitant]
     Indication: HYPERTENSION
     Dosage: 0.5 MG, QD
     Route: 048

REACTIONS (4)
  - Rheumatoid arthritis [Recovered/Resolved]
  - Tendonitis [Recovered/Resolved]
  - Polymyalgia rheumatica [Recovered/Resolved]
  - Musculoskeletal pain [Recovered/Resolved]
